FAERS Safety Report 17125027 (Version 1)
Quarter: 2019Q4

REPORT INFORMATION
  Report Type: Spontaneous
  Country: US (occurrence: US)
  Receive Date: 20191206
  Receipt Date: 20191206
  Transmission Date: 20200122
  Serious: Yes (Other)
  Sender: FDA-Public Use
  Company Number: US-RISING PHARMACEUTICALS, INC.-2019RIS00340

PATIENT
  Age: 23 Year
  Sex: Male
  Weight: 53.06 kg

DRUGS (7)
  1. PHENOBARBITAL. [Suspect]
     Active Substance: PHENOBARBITAL
     Indication: SEIZURE
     Dosage: 7.5 ML, 1X/DAY ^AM^
     Route: 048
     Dates: start: 1998, end: 20190620
  2. MIRALAX [Concomitant]
     Active Substance: POLYETHYLENE GLYCOL 3350
  3. PHENOBARBITAL. [Suspect]
     Active Substance: PHENOBARBITAL
     Dosage: 40 ML, 1X/DAY ^PM^
     Route: 048
     Dates: start: 1998, end: 20190620
  4. PHENOBARBITAL ORAL SOLUTION (BIORAMO) (PHENOBARBITAL ORAL SOLUTION (BIORAMO)) [Suspect]
     Active Substance: PHENOBARBITAL
     Indication: SEIZURE
     Dosage: UNK
     Dates: start: 20190620
  5. RANITIDINE. [Concomitant]
     Active Substance: RANITIDINE
  6. LAMICTAL [Concomitant]
     Active Substance: LAMOTRIGINE
  7. DIAZEPAM. [Concomitant]
     Active Substance: DIAZEPAM
     Dosage: UNK, AS NEEDED

REACTIONS (4)
  - Acne [Unknown]
  - Staphylococcal infection [Unknown]
  - Ulcer haemorrhage [Unknown]
  - Seizure [Unknown]

NARRATIVE: CASE EVENT DATE: 2019
